FAERS Safety Report 7592431-6 (Version None)
Quarter: 2011Q3

REPORT INFORMATION
  Report Type: 
  Country: None (occurrence: None)
  Receive Date: 20110706
  Receipt Date: 20110704
  Transmission Date: 20111222
  Serious: Yes (Hospitalization, Other)
  Sender: FDA-Public Use
  Company Number: SE-BRISTOL-MYERS SQUIBB COMPANY-15761513

PATIENT
  Age: 65 Year
  Sex: Male

DRUGS (6)
  1. NORVIR [Suspect]
     Dosage: FILM COATED TAB 100MG
     Dates: start: 20061016
  2. PREZISTA [Concomitant]
  3. REYATAZ [Suspect]
     Indication: HIV INFECTION
     Dosage: 1 DF: 2 TABS 150 MG LATER CHANGED TO 300MG OD
     Route: 048
     Dates: start: 20061016, end: 20110517
  4. VIREAD [Suspect]
     Dosage: FORMULATION:FILM COATED TAB 245MG
     Dates: start: 20061016
  5. EPIVIR [Concomitant]
  6. COMBIVIR [Suspect]
     Dosage: FILM COATED TAB
     Dates: start: 20061016

REACTIONS (2)
  - NEPHROLITHIASIS [None]
  - HYDRONEPHROSIS [None]
